FAERS Safety Report 6706243-6 (Version None)
Quarter: 2010Q2

REPORT INFORMATION
  Report Type: 
  Country: None (occurrence: None)
  Receive Date: 20100503
  Receipt Date: 20100426
  Transmission Date: 20101027
  Serious: Yes (Other)
  Sender: FDA-Public Use
  Company Number: JP-PFIZER INC-2010050815

PATIENT
  Sex: Female

DRUGS (2)
  1. ATARAX [Suspect]
     Route: 048
  2. ZOLOFT [Suspect]
     Route: 048

REACTIONS (2)
  - BLOOD COUNT ABNORMAL [None]
  - HYPONATRAEMIA [None]
